FAERS Safety Report 6030874-2 (Version None)
Quarter: 2009Q1

REPORT INFORMATION
  Report Type: 
  Country: None (occurrence: None)
  Receive Date: 20090106
  Receipt Date: 20081219
  Transmission Date: 20090719
  Serious: Yes (Death)
  Sender: FDA-Public Use
  Company Number: KV200801346

PATIENT
  Age: 73 Year
  Sex: Male

DRUGS (13)
  1. ISOSORBIDE MONONITRATE [Suspect]
     Indication: CARDIAC DISORDER
     Dosage: 30 MG, QD, ORAL
     Route: 048
     Dates: end: 20080101
  2. AVANDIA [Concomitant]
  3. BUMETANIDE [Concomitant]
  4. COUMADIN [Concomitant]
  5. COREG [Concomitant]
  6. SYNTHROID [Concomitant]
  7. PEPSID [Concomitant]
  8. HYDROCHLORIDE (HYDROCHLOROTHIAZIDE) [Concomitant]
  9. DIOVEN (VALSARTAN) [Concomitant]
  10. LEXAPRO [Concomitant]
  11. NOVOLOG [Concomitant]
  12. POTASSIUM (POTASSIUM) [Concomitant]
  13. ALLOPURINOL [Concomitant]

REACTIONS (5)
  - BACTERAEMIA [None]
  - CARDIAC FAILURE CONGESTIVE [None]
  - PRODUCT QUALITY ISSUE [None]
  - RENAL FAILURE CHRONIC [None]
  - SEPSIS [None]
